FAERS Safety Report 7913099-2 (Version None)
Quarter: 2011Q4

REPORT INFORMATION
  Report Type: 
  Country: None (occurrence: None)
  Receive Date: 20111114
  Receipt Date: 20110607
  Transmission Date: 20120403
  Serious: Yes (Death)
  Sender: FDA-Public Use
  Company Number: SG-ASTRAZENECA-1992AP64682

PATIENT
  Age: 37 Year
  Sex: Male
  Weight: 52 kg

DRUGS (3)
  1. POTASSIUM CHLORIDE [Concomitant]
     Route: 042
  2. DIPRIVAN [Suspect]
     Dosage: 1600 MG
     Route: 042
  3. CALCIUM GLUCONATE [Concomitant]
     Route: 042

REACTIONS (3)
  - OVERDOSE [None]
  - DRUG ABUSE [None]
  - COMPLETED SUICIDE [None]
